FAERS Safety Report 9813368 (Version 1)
Quarter: 2014Q1

REPORT INFORMATION
  Report Type: Spontaneous
  Country: US (occurrence: US)
  Receive Date: 20140113
  Receipt Date: 20140113
  Transmission Date: 20141002
  Serious: No
  Sender: FDA-Public Use
  Company Number: US-BAYER-2013-158660

PATIENT
  Age: 78 Year
  Sex: Female
  Weight: 71.2 kg

DRUGS (6)
  1. ALEVE TABLET [Suspect]
     Indication: JOINT STIFFNESS
     Dosage: 2 DF, QD
     Route: 048
     Dates: end: 201312
  2. ALEVE LIQUID GELS [Suspect]
     Indication: PAIN
     Dosage: 1 DF, QD
     Route: 048
     Dates: start: 201312
  3. ALEVE LIQUID GELS [Suspect]
     Indication: JOINT STIFFNESS
  4. TRAMADOL [Concomitant]
  5. OSTEO BI-FLEX [Concomitant]
  6. FISH OIL [Concomitant]

REACTIONS (5)
  - Chromaturia [Recovered/Resolved]
  - Drug ineffective [None]
  - Incorrect drug administration duration [None]
  - Off label use [None]
  - Off label use [None]
